FAERS Safety Report 4902124-9 (Version None)
Quarter: 2006Q1

REPORT INFORMATION
  Report Type: 
  Country: None (occurrence: None)
  Receive Date: 20060206
  Receipt Date: 20051128
  Transmission Date: 20060701
  Serious: Yes (Death)
  Sender: FDA-Public Use
  Company Number: CN-MERCK-0511CHN00025B1

PATIENT

DRUGS (1)
  1. PROPECIA [Suspect]
     Indication: ALOPECIA

REACTIONS (4)
  - ABORTION INDUCED [None]
  - APLASIA [None]
  - DRUG EXPOSURE BEFORE PREGNANCY [None]
  - FOETAL DISORDER [None]
